FAERS Safety Report 20181923 (Version 2)
Quarter: 2021Q4

REPORT INFORMATION
  Report Type: Spontaneous
  Country: US (occurrence: US)
  Receive Date: 20211214
  Receipt Date: 20211214
  Transmission Date: 20220303
  Serious: Yes (Death, Hospitalization)
  Sender: FDA-Public Use
  Company Number: US-CELGENE-USA-20211203592

PATIENT
  Age: 87 Year
  Sex: Male

DRUGS (1)
  1. REVLIMID [Suspect]
     Active Substance: LENALIDOMIDE
     Indication: Plasma cell myeloma
     Dosage: 10 MILLIGRAM
     Route: 048
     Dates: start: 20180125, end: 20211031

REACTIONS (3)
  - Death [Fatal]
  - Otitis media [Unknown]
  - Ascites [Unknown]

NARRATIVE: CASE EVENT DATE: 20211031
